FAERS Safety Report 10587087 (Version 3)
Quarter: 2014Q4

REPORT INFORMATION
  Report Type: Spontaneous
  Country: BR (occurrence: BR)
  Receive Date: 20141117
  Receipt Date: 20141121
  Transmission Date: 20150529
  Serious: Yes (Death, Other)
  Sender: FDA-Public Use
  Company Number: BR-PFIZER INC-2014100769

PATIENT
  Age: 67 Year
  Sex: Male
  Weight: 118 kg

DRUGS (5)
  1. LASILACTONA [Concomitant]
     Dosage: 1 TABLET, 1X/DAY
  2. CARDIZEM [Concomitant]
     Active Substance: DILTIAZEM HYDROCHLORIDE
     Indication: BLOOD PRESSURE
     Dosage: 1 TABLET (90 MG), 2X/DAY
  3. SERTRALINE [Concomitant]
     Active Substance: SERTRALINE HYDROCHLORIDE
     Dosage: 1 TABLET (50 MG), 1X/DAY
  4. SUTENT [Suspect]
     Active Substance: SUNITINIB MALATE
     Indication: RENAL CELL CARCINOMA
     Dosage: 50 MG, CYCLIC (CYCLE 4X2)
     Route: 048
     Dates: start: 20140218
  5. PANTOPRAZOLE [Concomitant]
     Active Substance: PANTOPRAZOLE SODIUM
     Dosage: 1 TABLET (40 MG), 1X/DAY

REACTIONS (14)
  - Leukopenia [Unknown]
  - Skin exfoliation [Unknown]
  - Multi-organ failure [Fatal]
  - Dermatitis diaper [Unknown]
  - Anaemia [Not Recovered/Not Resolved]
  - Decreased appetite [Not Recovered/Not Resolved]
  - Renal cell carcinoma [Fatal]
  - Ascites [Unknown]
  - Renal failure [Fatal]
  - Disease progression [Fatal]
  - Diarrhoea [Not Recovered/Not Resolved]
  - Mucosal inflammation [Recovered/Resolved]
  - Burning sensation [Unknown]
  - Platelet count decreased [Not Recovered/Not Resolved]

NARRATIVE: CASE EVENT DATE: 2014
